FAERS Safety Report 9184159 (Version 1)
Quarter: 2012Q4

REPORT INFORMATION
  Report Type: Report from Study
  Country: CA (occurrence: CA)
  Receive Date: 20121101
  Receipt Date: 20121101
  Transmission Date: 20130627
  Serious: Yes (Hospitalization)
  Sender: FDA-Public Use
  Company Number: CA-JNJFOC-20121014384

PATIENT
  Age: 64 None
  Sex: Male

DRUGS (3)
  1. STELARA [Suspect]
     Indication: PSORIASIS
     Route: 058
     Dates: start: 20110910
  2. HYDROXYUREA [Suspect]
     Indication: BLOOD DISORDER
  3. HYDROXYUREA [Suspect]
     Indication: BLOOD DISORDER

REACTIONS (3)
  - Kidney infection [Recovering/Resolving]
  - Pneumonia [Recovering/Resolving]
  - Anaemia [Recovering/Resolving]
